FAERS Safety Report 17899016 (Version 1)
Quarter: 2020Q2

REPORT INFORMATION
  Report Type: Spontaneous
  Country: DE (occurrence: DE)
  Receive Date: 20200615
  Receipt Date: 20200615
  Transmission Date: 20200714
  Serious: Yes (Hospitalization)
  Sender: FDA-Public Use
  Company Number: DE-TEVA-2020-DE-1247539

PATIENT
  Age: 72 Year
  Sex: Female
  Weight: 71 kg

DRUGS (12)
  1. SIROLIMUS. [Concomitant]
     Active Substance: SIROLIMUS
     Dosage: .5 MILLIGRAM DAILY; 0-1-0-0
  2. BISOPROLOL [Concomitant]
     Active Substance: BISOPROLOL
     Dosage: 2.5 MILLIGRAM DAILY; 1-0-0-0
  3. CANDESARTAN. [Concomitant]
     Active Substance: CANDESARTAN
     Dosage: 16 MG, 0-0.5-0-0, UNIT DOSE: 8 MG
  4. ESOMEPRAZOL [Concomitant]
     Active Substance: ESOMEPRAZOLE
     Dosage: 20 MG, 2-0-0-0, UNIT DOSE: 40 MG
  5. MOWEL 500 MG [Suspect]
     Active Substance: MYCOPHENOLIC ACID
     Dosage: 1000 MILLIGRAM DAILY; 1-0-1-0
  6. METAMIZOL [Concomitant]
     Active Substance: METAMIZOLE SODIUM
     Dosage: 500 MG / ML, NEED, DROPS
  7. PRAVASTATIN. [Concomitant]
     Active Substance: PRAVASTATIN
     Dosage: 40 MILLIGRAM DAILY;  0-0-1-0
  8. ALLOPURINOL. [Suspect]
     Active Substance: ALLOPURINOL
     Dosage: 300 MG, 0-0.5-0-0, UNIT DOSE: 150 MG
  9. COLECALCIFEROL (VITAMIN D) [Concomitant]
     Dosage: 4000 IU (INTERNATIONAL UNIT) DAILY;  2-0-0-0
  10. SIROLIMUS. [Concomitant]
     Active Substance: SIROLIMUS
     Dosage: 1 MILLIGRAM DAILY;  0-1-0-0
  11. TORASEMID [Concomitant]
     Active Substance: TORSEMIDE
     Dosage: 20 MG, 1-1-0-0, UNIT DOSE: 40 MG
  12. ACETYLSALICYLSAURE [Concomitant]
     Active Substance: ASPIRIN
     Dosage: 100 MILLIGRAM DAILY; 0-1-0-0

REACTIONS (3)
  - Pyrexia [Unknown]
  - Cardiac murmur functional [Unknown]
  - Oedema peripheral [Unknown]
